FAERS Safety Report 6783949-4 (Version None)
Quarter: 2010Q2

REPORT INFORMATION
  Report Type: 
  Country: None (occurrence: None)
  Receive Date: 20100622
  Receipt Date: 20090520
  Transmission Date: 20101027
  Serious: No
  Sender: FDA-Public Use
  Company Number: US-BRISTOL-MYERS SQUIBB COMPANY-14631113

PATIENT
  Age: 81 Year
  Sex: Female

DRUGS (11)
  1. SINEMET [Suspect]
     Dosage: 1 DF= 25/100 UNITS NOT SPECIFIED
  2. NAMENDA [Concomitant]
  3. VITAMIN B-12 [Concomitant]
  4. LISINOPRIL [Concomitant]
  5. ASPIRIN [Concomitant]
  6. TOPROL-XL [Concomitant]
  7. MEGACE [Concomitant]
     Dosage: SOLUTION FORM
  8. VITAMIN B6 [Concomitant]
  9. LASIX [Concomitant]
  10. SENOKOT [Concomitant]
  11. VITAMIN D [Concomitant]

REACTIONS (1)
  - RASH MACULO-PAPULAR [None]
